FAERS Safety Report 12644640 (Version 3)
Quarter: 2016Q3

REPORT INFORMATION
  Report Type: Report from Study
  Country: US (occurrence: US)
  Receive Date: 20160811
  Receipt Date: 20160816
  Transmission Date: 20161109
  Serious: Yes (Hospitalization)
  Sender: FDA-Public Use
  Company Number: US-BIOGEN-2016BI00276998

PATIENT
  Sex: Male

DRUGS (1)
  1. TECFIDERA [Suspect]
     Active Substance: DIMETHYL FUMARATE
     Indication: MULTIPLE SCLEROSIS
     Route: 048
     Dates: start: 20140611

REACTIONS (6)
  - Musculoskeletal disorder [Unknown]
  - Drug hypersensitivity [Not Recovered/Not Resolved]
  - Disorientation [Not Recovered/Not Resolved]
  - Multiple sclerosis relapse [Unknown]
  - Arthropod bite [Unknown]
  - Feeling abnormal [Unknown]

NARRATIVE: CASE EVENT DATE: 2016
